FAERS Safety Report 13480714 (Version 2)
Quarter: 2017Q3

REPORT INFORMATION
  Report Type: Report from Study
  Country: US (occurrence: US)
  Receive Date: 20170424
  Receipt Date: 20170728
  Transmission Date: 20171127
  Serious: No
  Sender: FDA-Public Use
  Company Number: US-AMGEN-USASL2017043389

PATIENT
  Age: 71 Year
  Sex: Female

DRUGS (1)
  1. REPATHA [Suspect]
     Active Substance: EVOLOCUMAB
     Indication: HEPATIC ENZYME INCREASED
     Dosage: 140 MG, Q2WK
     Route: 065

REACTIONS (3)
  - Nasopharyngitis [Unknown]
  - Respiratory tract congestion [Unknown]
  - Malaise [Unknown]
